FAERS Safety Report 5879899-8 (Version None)
Quarter: 2008Q3

REPORT INFORMATION
  Report Type: 
  Country: None (occurrence: None)
  Receive Date: 20080912
  Receipt Date: 20080902
  Transmission Date: 20090109
  Serious: Yes (Hospitalization, Other)
  Sender: FDA-Public Use
  Company Number: JP-PFIZER INC-2008064906

PATIENT
  Sex: Female

DRUGS (10)
  1. MIGLITOL TABLET [Suspect]
     Indication: DIABETES MELLITUS
     Dosage: DAILY DOSE:150MG
     Route: 048
     Dates: start: 20071127
  2. KINEDAK [Concomitant]
     Route: 048
  3. CYANOCOBALAMIN [Concomitant]
     Route: 048
  4. JUVELA NICOTINATE [Concomitant]
     Route: 048
  5. RISPERDAL [Concomitant]
     Route: 048
  6. AKINETON [Concomitant]
     Route: 048
  7. ARTANE [Concomitant]
     Route: 048
  8. SILECE [Concomitant]
     Route: 048
  9. HIRNAMIN [Concomitant]
     Route: 048
  10. PROMETHAZINE HCL [Concomitant]
     Route: 048

REACTIONS (4)
  - FALL [None]
  - FEMORAL NECK FRACTURE [None]
  - HYPOGLYCAEMIA [None]
  - LOSS OF CONTROL OF LEGS [None]
